FAERS Safety Report 20699282 (Version 1)
Quarter: 2022Q2

REPORT INFORMATION
  Report Type: Spontaneous
  Country: AU (occurrence: AU)
  Receive Date: 20220412
  Receipt Date: 20220412
  Transmission Date: 20220721
  Serious: Yes (Other)
  Sender: FDA-Public Use
  Company Number: AU-SA-SAC20220409000031

PATIENT
  Age: 65 Year
  Sex: Male

DRUGS (1)
  1. CLOPIDOGREL BISULFATE [Suspect]
     Active Substance: CLOPIDOGREL BISULFATE
     Dates: start: 20211204

REACTIONS (8)
  - Aphasia [Unknown]
  - Bone pain [Unknown]
  - Embolic stroke [Unknown]
  - Fatigue [Unknown]
  - Malaise [Unknown]
  - Palpitations [Unknown]
  - Hypoaesthesia [Unknown]
  - Contusion [Unknown]
